FAERS Safety Report 10040340 (Version 1)
Quarter: 2014Q1

REPORT INFORMATION
  Report Type: Spontaneous
  Country: US (occurrence: US)
  Receive Date: 20140327
  Receipt Date: 20140327
  Transmission Date: 20141002
  Serious: No
  Sender: FDA-Public Use
  Company Number: US-BIOGENIDEC-2013BI105911

PATIENT
  Sex: Female

DRUGS (1)
  1. AVONEX [Suspect]
     Indication: MULTIPLE SCLEROSIS
     Route: 030
     Dates: start: 20130104, end: 20130801

REACTIONS (4)
  - Musculoskeletal disorder [Unknown]
  - Adverse event [Recovered/Resolved]
  - Multiple sclerosis relapse [Unknown]
  - Anxiety [Recovered/Resolved]
